FAERS Safety Report 10302219 (Version 2)
Quarter: 2015Q2

REPORT INFORMATION
  Report Type: Spontaneous
  Country: FR (occurrence: FR)
  Receive Date: 20140714
  Receipt Date: 20150615
  Transmission Date: 20150821
  Serious: Yes (Hospitalization)
  Sender: FDA-Public Use
  Company Number: FR-SA-2014SA091796

PATIENT
  Age: 77 Year
  Sex: Male

DRUGS (23)
  1. MOPRAL [Suspect]
     Active Substance: OMEPRAZOLE SODIUM
     Indication: GASTRIC PH DECREASED
     Route: 048
     Dates: start: 20140401, end: 20140416
  2. RANITIDINE [Concomitant]
     Active Substance: RANITIDINE\RANITIDINE HYDROCHLORIDE
     Dates: start: 20140520
  3. LOVENOX [Concomitant]
     Active Substance: ENOXAPARIN SODIUM
     Dates: start: 20140706
  4. TAHOR [Suspect]
     Active Substance: ATORVASTATIN CALCIUM
     Indication: HYPERCHOLESTEROLAEMIA
     Route: 048
     Dates: start: 20140401, end: 20140416
  5. PREVISCAN [Suspect]
     Active Substance: FLUINDIONE
     Indication: THROMBOSIS PROPHYLAXIS
     Route: 048
     Dates: start: 20140401, end: 20140416
  6. ISOCARD [Suspect]
     Active Substance: ISOSORBIDE DINITRATE
     Indication: CARDIOVASCULAR EVENT PROPHYLAXIS
     Route: 055
     Dates: start: 20140401, end: 20140416
  7. ALDACTONE [Suspect]
     Active Substance: SPIRONOLACTONE
     Indication: PRODUCT USED FOR UNKNOWN INDICATION
     Route: 048
     Dates: start: 20140401
  8. SPECIAFOLDINE [Concomitant]
     Active Substance: FOLIC ACID
     Dates: start: 20140521
  9. PLAVIX [Suspect]
     Active Substance: CLOPIDOGREL BISULFATE
     Indication: THROMBOSIS PROPHYLAXIS
     Route: 048
     Dates: start: 20140401, end: 20140513
  10. CEFTRIAXONE. [Concomitant]
     Active Substance: CEFTRIAXONE
     Dates: start: 20140520
  11. DEROXAT [Concomitant]
     Active Substance: PAROXETINE HYDROCHLORIDE
     Dates: start: 20140521
  12. AMIODARONE HYDROCHLORIDE. [Suspect]
     Active Substance: AMIODARONE HYDROCHLORIDE
     Indication: CARDIOVASCULAR EVENT PROPHYLAXIS
     Route: 048
     Dates: start: 20140401, end: 20140520
  13. TRIATEC [Suspect]
     Active Substance: RAMIPRIL
     Indication: CARDIOVASCULAR EVENT PROPHYLAXIS
     Route: 048
     Dates: start: 20140401, end: 20140416
  14. DIAMICRON [Suspect]
     Active Substance: GLICLAZIDE
     Indication: TYPE 2 DIABETES MELLITUS
     Route: 048
     Dates: start: 20140401
  15. LASILIX [Suspect]
     Active Substance: FUROSEMIDE
     Indication: FLUID RETENTION
     Route: 048
     Dates: start: 20140401
  16. KARDEGIC [Suspect]
     Active Substance: ASPIRIN LYSINE
     Indication: THROMBOSIS PROPHYLAXIS
     Route: 048
     Dates: start: 20140401
  17. PANTOPRAZOLE [Concomitant]
     Active Substance: PANTOPRAZOLE SODIUM
     Dates: start: 20140606
  18. BISOPROLOL [Concomitant]
     Active Substance: BISOPROLOL
     Dates: start: 20140513
  19. LORAMYC [Concomitant]
     Active Substance: MICONAZOLE
     Dates: start: 20140522
  20. FUNGIZONE [Concomitant]
     Active Substance: AMPHOTERICIN B
     Dates: start: 20140416
  21. METOCLOPRAMIDE. [Concomitant]
     Active Substance: METOCLOPRAMIDE
     Dates: start: 20140525
  22. MACROGOL [Concomitant]
     Active Substance: POLYETHYLENE GLYCOLS
     Dates: start: 20140513
  23. HALDOL [Concomitant]
     Active Substance: HALOPERIDOL
     Dates: start: 20140425

REACTIONS (1)
  - Dysgeusia [Recovered/Resolved]

NARRATIVE: CASE EVENT DATE: 20140403
